FAERS Safety Report 11033466 (Version 2)
Quarter: 2015Q2

REPORT INFORMATION
  Report Type: Spontaneous
  Country: DE (occurrence: DE)
  Receive Date: 20150415
  Receipt Date: 20150421
  Transmission Date: 20150821
  Serious: Yes (Hospitalization, Disabling)
  Sender: FDA-Public Use
  Company Number: GXKR2015DE001986

PATIENT

DRUGS (5)
  1. PHENPROCOUMON [Interacting]
     Active Substance: PHENPROCOUMON
     Dosage: 3 MG, 7XDAILY
     Route: 048
     Dates: start: 20150323
  2. CLOPIDOGREL [Interacting]
     Active Substance: CLOPIDOGREL BISULFATE
     Dosage: 75 MG, ONCE DAILY
     Route: 048
     Dates: start: 20150320
  3. ACETYLSALICYLIC ACID [Suspect]
     Active Substance: ASPIRIN
     Dosage: 100 MG, ONCE DAILY
     Route: 048
     Dates: start: 20150320
  4. ELIQUIS [Interacting]
     Active Substance: APIXABAN
     Dosage: 5 MG, TWICE DAILY
     Route: 048
     Dates: start: 20150320
  5. MONO-EMBOLEX [Interacting]
     Active Substance: CERTOPARIN SODIUM
     Dosage: 8000 IU, TWICE DAILY
     Dates: start: 20150323

REACTIONS (2)
  - Compartment syndrome [Not Recovered/Not Resolved]
  - Haematoma [Not Recovered/Not Resolved]

NARRATIVE: CASE EVENT DATE: 20150323
